FAERS Safety Report 9528313 (Version 2)
Quarter: 2013Q4

REPORT INFORMATION
  Report Type: Spontaneous
  Country: BR (occurrence: BR)
  Receive Date: 20130917
  Receipt Date: 20131028
  Transmission Date: 20140711
  Serious: Yes (Hospitalization, Other)
  Sender: FDA-Public Use
  Company Number: BR-ABBVIE-13P-020-1145257-00

PATIENT
  Age: 37 Year
  Sex: Female
  Weight: 40 kg

DRUGS (2)
  1. HUMIRA [Suspect]
     Indication: RHEUMATOID ARTHRITIS
     Route: 058
  2. UNKNOWN MEDICATION [Concomitant]
     Indication: RHEUMATOID ARTHRITIS
     Dosage: MAGISTRAL PREPARATION

REACTIONS (3)
  - Malaise [Unknown]
  - Pulmonary tuberculosis [Unknown]
  - Abdominal pain [Unknown]
